FAERS Safety Report 5459509-4 (Version None)
Quarter: 2007Q3

REPORT INFORMATION
  Report Type: 
  Country: None (occurrence: None)
  Receive Date: 20070919
  Receipt Date: 20070911
  Transmission Date: 20080115
  Serious: Yes (Hospitalization)
  Sender: FDA-Public Use
  Company Number: B0486607A

PATIENT
  Age: 75 Year
  Sex: Female

DRUGS (3)
  1. FLIXOTIDE [Suspect]
     Indication: ASTHMA
     Route: 055
  2. VENTOLIN [Suspect]
     Indication: ASTHMA
     Route: 055
  3. OXIS TURBUHALER [Concomitant]

REACTIONS (4)
  - APHONIA [None]
  - DRY MOUTH [None]
  - DRY THROAT [None]
  - ILL-DEFINED DISORDER [None]
